FAERS Safety Report 24264238 (Version 1)
Quarter: 2024Q3

REPORT INFORMATION
  Report Type: Spontaneous
  Country: CA (occurrence: CA)
  Receive Date: 20240829
  Receipt Date: 20240829
  Transmission Date: 20241016
  Serious: Yes (Other)
  Sender: GILEAD
  Company Number: CA-GILEAD-2024-0685209

PATIENT
  Age: 74 Year
  Sex: Female

DRUGS (3)
  1. YESCARTA [Suspect]
     Active Substance: AXICABTAGENE CILOLEUCEL
     Indication: Diffuse large B-cell lymphoma
     Dosage: UNK
     Route: 042
  2. FLUDARABINE [Concomitant]
     Active Substance: FLUDARABINE PHOSPHATE
     Indication: Lymphodepletion
     Dosage: 30 MG/M2 FOR 3 DAYS STARTING 45 DAYS PRIOR TO CAR-T
     Route: 065
  3. CYCLOPHOSPHAMIDE [Concomitant]
     Active Substance: CYCLOPHOSPHAMIDE
     Indication: Lymphodepletion
     Dosage: 500 MG/M2 FOR 3 DAYS STARTING 45 DAYS PRIOR TO CAR-T

REACTIONS (3)
  - Myocarditis [Recovering/Resolving]
  - Cytokine release syndrome [Recovering/Resolving]
  - Pulmonary oedema [Unknown]
